FAERS Safety Report 10873148 (Version 1)
Quarter: 2015Q1

REPORT INFORMATION
  Report Type: Spontaneous
  Country: US (occurrence: US)
  Receive Date: 20150227
  Receipt Date: 20150227
  Transmission Date: 20150721
  Serious: No
  Sender: FDA-Public Use
  Company Number: US-009507513-1501USA012179

PATIENT
  Age: 26 Year
  Sex: Female
  Weight: 84.35 kg

DRUGS (1)
  1. NEXPLANON [Suspect]
     Active Substance: ETONOGESTREL
     Indication: CONTRACEPTION
     Dosage: UNK
     Route: 059
     Dates: start: 20130903

REACTIONS (2)
  - Menstruation delayed [Not Recovered/Not Resolved]
  - Oligomenorrhoea [Recovered/Resolved]

NARRATIVE: CASE EVENT DATE: 20130903
